FAERS Safety Report 4917599-9 (Version None)
Quarter: 2006Q1

REPORT INFORMATION
  Report Type: 
  Country: None (occurrence: None)
  Receive Date: 20060221
  Receipt Date: 20050422
  Transmission Date: 20060701
  Serious: Yes (Hospitalization, Disabling)
  Sender: FDA-Public Use
  Company Number: US-MERCK-0505USA00245

PATIENT
  Age: 69 Year
  Sex: Female
  Weight: 125 kg

DRUGS (5)
  1. VIOXX [Suspect]
     Indication: INFLAMMATION
     Route: 048
     Dates: start: 20000614, end: 20041001
  2. VIOXX [Suspect]
     Route: 048
     Dates: start: 20000614, end: 20041001
  3. VIOXX [Suspect]
     Indication: ARTHRITIS
     Route: 048
     Dates: start: 20000614, end: 20041001
  4. VIOXX [Suspect]
     Route: 048
     Dates: start: 20000614, end: 20041001
  5. ZIAC [Concomitant]
     Route: 065

REACTIONS (5)
  - COUGH [None]
  - HIATUS HERNIA [None]
  - HYPERHOMOCYSTEINAEMIA [None]
  - PULMONARY EMBOLISM [None]
  - RENAL IMPAIRMENT [None]
